FAERS Safety Report 10465081 (Version 1)
Quarter: 2014Q3

REPORT INFORMATION
  Report Type: Other
  Country: NO (occurrence: NO)
  Receive Date: 20140919
  Receipt Date: 20140919
  Transmission Date: 20150326
  Serious: Yes (Life-Threatening, Hospitalization, Other)
  Sender: FDA-Public Use
  Company Number: NO-MYLANLABS-2014M1003898

PATIENT

DRUGS (6)
  1. ZYPADHERA [Suspect]
     Active Substance: OLANZAPINE PAMOATE
     Indication: SCHIZOPHRENIA
     Dosage: 300 MG, EVERY 3 WEEKS
     Route: 030
  2. ENALAPRIL [Concomitant]
     Active Substance: ENALAPRIL
     Indication: SUPPLEMENTATION THERAPY
     Dosage: 1 MG, UNKNOWN
     Route: 048
  3. OLANZAPINE. [Suspect]
     Active Substance: OLANZAPINE
     Indication: PRODUCT USED FOR UNKNOWN INDICATION
     Dosage: 10 MG, UNKNOWN
     Route: 048
  4. FOLIC ACID. [Concomitant]
     Active Substance: FOLIC ACID
     Indication: CHRONIC OBSTRUCTIVE PULMONARY DISEASE
     Dosage: 18 UG, UNKNOWN
     Route: 055
  5. TIOTROPIUM BROMIDE [Concomitant]
     Active Substance: TIOTROPIUM BROMIDE
     Indication: PRODUCT USED FOR UNKNOWN INDICATION
     Dosage: 10 MG, UNK
     Route: 048
  6. SPIRIVA [Concomitant]
     Active Substance: TIOTROPIUM BROMIDE MONOHYDRATE
     Indication: CHRONIC OBSTRUCTIVE PULMONARY DISEASE
     Dosage: 18 ?G, UNK
     Route: 055

REACTIONS (11)
  - Balance disorder [Unknown]
  - Dysarthria [Unknown]
  - Muscle twitching [Unknown]
  - Neuroleptic malignant syndrome [Recovered/Resolved]
  - Blood pressure increased [Unknown]
  - Overdose [Unknown]
  - Dizziness [Unknown]
  - Dizziness [Unknown]
  - Dysarthria [Unknown]
  - Anticholinergic syndrome [Unknown]
  - Heart rate increased [Unknown]

NARRATIVE: CASE EVENT DATE: 20140612
